FAERS Safety Report 15735756 (Version 2)
Quarter: 2018Q4

REPORT INFORMATION
  Report Type: Spontaneous
  Country: GB (occurrence: GB)
  Receive Date: 20181218
  Receipt Date: 20181224
  Transmission Date: 20190205
  Serious: Yes (Death)
  Sender: FDA-Public Use
  Company Number: GB-PFIZER INC-17053

PATIENT
  Age: 78 Year
  Sex: Male

DRUGS (2)
  1. ZARNESTRA [Suspect]
     Active Substance: TIPIFARNIB
     Indication: ACUTE MYELOID LEUKAEMIA
     Dosage: 300 MG, FREQ:UNK
     Route: 048
     Dates: start: 20070516, end: 20070607
  2. CYTARABINE. [Suspect]
     Active Substance: CYTARABINE
     Indication: ACUTE MYELOID LEUKAEMIA
     Dosage: 20 MG, FREQ: BID
     Route: 058
     Dates: start: 20070516, end: 20070607

REACTIONS (2)
  - Neoplasm progression [Fatal]
  - Sepsis [Fatal]

NARRATIVE: CASE EVENT DATE: 20070608
